FAERS Safety Report 8007582-1 (Version None)
Quarter: 2011Q4

REPORT INFORMATION
  Report Type: 
  Country: None (occurrence: None)
  Receive Date: 20111222
  Receipt Date: 20111222
  Transmission Date: 20120403
  Serious: Yes (Other)
  Sender: FDA-Public Use
  Company Number: None

PATIENT
  Sex: Female

DRUGS (2)
  1. FORTEO [Concomitant]
  2. LYRICA [Suspect]
     Indication: PAIN
     Dosage: 75 MG HS PO
     Route: 048
     Dates: start: 20111122

REACTIONS (5)
  - VISUAL IMPAIRMENT [None]
  - GAIT DISTURBANCE [None]
  - ABASIA [None]
  - DIZZINESS [None]
  - FEELING ABNORMAL [None]
